FAERS Safety Report 7650965-X (Version None)
Quarter: 2011Q3

REPORT INFORMATION
  Report Type: 
  Country: None (occurrence: None)
  Receive Date: 20110727
  Receipt Date: 20110711
  Transmission Date: 20111222
  Serious: Yes (Death, Life-Threatening, Other)
  Sender: FDA-Public Use
  Company Number: 2011MA008658

PATIENT
  Age: 1 Day

DRUGS (1)
  1. FLUOXETINE [Suspect]
     Indication: MATERNAL EXPOSURE DURING PREGNANCY

REACTIONS (7)
  - RESPIRATORY FAILURE [None]
  - CONGENITAL PULMONARY HYPERTENSION [None]
  - CARDIAC FAILURE [None]
  - PULMONARY HAEMORRHAGE [None]
  - PREMATURE BABY [None]
  - MATERNAL DRUGS AFFECTING FOETUS [None]
  - PULMONARY OEDEMA [None]
